FAERS Safety Report 8473568-6 (Version None)
Quarter: 2012Q2

REPORT INFORMATION
  Report Type: 
  Country: None (occurrence: None)
  Receive Date: 20120628
  Receipt Date: 20110623
  Transmission Date: 20120825
  Serious: Yes (Other)
  Sender: FDA-Public Use
  Company Number: US-MYLANLABS-2011S1011796

PATIENT
  Age: 48 Year
  Sex: Male

DRUGS (2)
  1. CLOZAPINE [Suspect]
  2. CHEMOTHERAPEUTICS [Suspect]
     Indication: LUNG NEOPLASM MALIGNANT

REACTIONS (2)
  - LEUKOPENIA [None]
  - AGRANULOCYTOSIS [None]
